FAERS Safety Report 6939157-7 (Version None)
Quarter: 2010Q3

REPORT INFORMATION
  Report Type: 
  Country: None (occurrence: None)
  Receive Date: 20100824
  Receipt Date: 20100810
  Transmission Date: 20110219
  Serious: No
  Sender: FDA-Public Use
  Company Number: US-PFIZER INC-2010101201

PATIENT
  Sex: Female
  Weight: 43.084 kg

DRUGS (3)
  1. LIPITOR [Suspect]
     Indication: BLOOD CHOLESTEROL INCREASED
     Dosage: 40 MG, 1X/DAY
     Route: 048
     Dates: end: 20100810
  2. COREG [Concomitant]
     Dosage: UNK
  3. FELODIPINE [Concomitant]
     Dosage: 2.5 MG, UNK

REACTIONS (1)
  - MUSCLE SPASMS [None]
